FAERS Safety Report 7190992-2 (Version None)
Quarter: 2010Q4

REPORT INFORMATION
  Report Type: 
  Country: None (occurrence: None)
  Receive Date: 20101223
  Receipt Date: 20100809
  Transmission Date: 20110411
  Serious: No
  Sender: FDA-Public Use
  Company Number: US-AMGEN-TCS430232

PATIENT

DRUGS (1)
  1. ENBREL [Suspect]
     Indication: RHEUMATOID ARTHRITIS
     Dosage: 50 MG, QWK
     Route: 058

REACTIONS (7)
  - ARTHROPOD BITE [None]
  - EXCORIATION [None]
  - IMPAIRED HEALING [None]
  - INFECTED BITES [None]
  - NIGHT BLINDNESS [None]
  - SEBORRHOEIC KERATOSIS [None]
  - THERAPEUTIC RESPONSE DECREASED [None]
